FAERS Safety Report 5247870-5 (Version None)
Quarter: 2007Q1

REPORT INFORMATION
  Report Type: 
  Country: None (occurrence: None)
  Receive Date: 20070220
  Receipt Date: 20070201
  Transmission Date: 20070707
  Serious: Yes (Death, Hospitalization)
  Sender: FDA-Public Use
  Company Number: 231235

PATIENT
  Age: 88 Year
  Sex: Female
  Weight: 56 kg

DRUGS (20)
  1. RANIBIZUMAB (RANIBIZUMAB) PWDR + SOLVENT, INJECTION SOLN [Suspect]
     Indication: MACULAR DEGENERATION
     Dosage: INTRAVITREAL
     Dates: start: 20060307, end: 20060511
  2. FOSAMAX [Concomitant]
  3. TRICOR [Concomitant]
  4. PLAVIX [Concomitant]
  5. CELEBREX [Concomitant]
  6. SPIRONOLACTONE [Concomitant]
  7. FUROSEMIDE [Concomitant]
  8. COREG [Concomitant]
  9. LIPITOR [Concomitant]
  10. MILK OF MAGNESIA TAB [Concomitant]
  11. METAMUCIL (PSYLLIUM HUSK) [Concomitant]
  12. CENTRUM SILVER (MINERALS NOS, MULTIVITAMINS NOS) [Concomitant]
  13. CALTRATE 600 + D (CALCIUM NOS, CHOLECALCIFEROL) [Concomitant]
  14. DULCOLAX [Concomitant]
  15. OCUVITE (ASCORBIC ACID, BETA CAROTENE, COPPER NOS, LUTEIN, SELLENIUM N [Concomitant]
  16. TYLENOL (CAPLET) [Concomitant]
  17. NAPROXEN [Concomitant]
  18. BENAZEPRIL (BENAZEPRIL) [Concomitant]
  19. FUROSEMIDE [Concomitant]
  20. COREG [Concomitant]

REACTIONS (12)
  - ABDOMINAL PAIN [None]
  - ANAEMIA [None]
  - ASTHENIA [None]
  - CARDIO-RESPIRATORY ARREST [None]
  - CORONARY ARTERY DISEASE [None]
  - DEHYDRATION [None]
  - DUODENAL ULCER HAEMORRHAGE [None]
  - DYSPNOEA [None]
  - FATIGUE [None]
  - GASTRITIS [None]
  - URINARY TRACT INFECTION [None]
  - WEIGHT DECREASED [None]
